FAERS Safety Report 18321579 (Version 1)
Quarter: 2020Q3

REPORT INFORMATION
  Report Type: Spontaneous
  Country: DE (occurrence: DE)
  Receive Date: 20200928
  Receipt Date: 20200928
  Transmission Date: 20201103
  Serious: Yes (Other)
  Sender: FDA-Public Use
  Company Number: DE-TEVA-2020-DE-1831525

PATIENT
  Age: 31 Year
  Sex: Female
  Weight: 70 kg

DRUGS (1)
  1. IBUPROFEN 800 [Suspect]
     Active Substance: IBUPROFEN
     Dosage: IF NECESSARY, 3 DOSAGE FORMS
     Dates: start: 202008

REACTIONS (4)
  - Haemorrhage [Not Recovered/Not Resolved]
  - Breast discharge [Not Recovered/Not Resolved]
  - Chest pain [Not Recovered/Not Resolved]
  - Abdominal pain [Not Recovered/Not Resolved]

NARRATIVE: CASE EVENT DATE: 202008
